FAERS Safety Report 13600499 (Version 2)
Quarter: 2017Q2

REPORT INFORMATION
  Report Type: Report from Study
  Country: CA (occurrence: CA)
  Receive Date: 20170601
  Receipt Date: 20170614
  Transmission Date: 20170830
  Serious: Yes (Other)
  Sender: FDA-Public Use
  Company Number: CA-AMGEN-CANSL2017081219

PATIENT
  Age: 83 Year
  Sex: Female
  Weight: 75.28 kg

DRUGS (2)
  1. PROLIA [Suspect]
     Active Substance: DENOSUMAB
     Indication: OSTEOPOROSIS POSTMENOPAUSAL
     Dosage: 60 MG, Q6MO
     Route: 058
     Dates: start: 20131028, end: 20161119
  2. COVERSYL [Concomitant]
     Active Substance: PERINDOPRIL
     Indication: HYPERTENSION
     Dosage: 8 MG, QD
     Dates: start: 2010

REACTIONS (4)
  - Bone loss [Unknown]
  - Osteonecrosis of jaw [Recovering/Resolving]
  - Infection [Unknown]
  - Tooth disorder [Unknown]

NARRATIVE: CASE EVENT DATE: 2016
